FAERS Safety Report 4726880-8 (Version None)
Quarter: 2005Q3

REPORT INFORMATION
  Report Type: 
  Country: None (occurrence: None)
  Receive Date: 20050727
  Receipt Date: 20050727
  Transmission Date: 20060218
  Serious: Yes (Hospitalization)
  Sender: FDA-Public Use
  Company Number: None

PATIENT
  Age: 60 Year
  Sex: Male
  Weight: 73.7 kg

DRUGS (8)
  1. CARBAMAZEPINE [Suspect]
     Dosage: 800MG, 400MG BI, ORAL
     Route: 048
  2. BACLOFEN [Concomitant]
  3. CITALOPRAM HYDROBROMIDE [Concomitant]
  4. FLUTICASONE PROP [Concomitant]
  5. HCTZ 50/TRIAMTERENE 75 MG [Concomitant]
  6. LACTULOSE [Concomitant]
  7. METOPROLOL TARTRATE [Concomitant]
  8. ROSUVASTATIN CA [Concomitant]

REACTIONS (1)
  - DRUG LEVEL ABOVE THERAPEUTIC [None]
